FAERS Safety Report 13022629 (Version 1)
Quarter: 2016Q4

REPORT INFORMATION
  Report Type: Spontaneous
  Country: IT (occurrence: IT)
  Receive Date: 20161213
  Receipt Date: 20161213
  Transmission Date: 20170207
  Serious: Yes (Hospitalization)
  Sender: FDA-Public Use
  Company Number: IT-PFIZER INC-2013220738

PATIENT
  Age: 49 Year
  Sex: Male

DRUGS (11)
  1. TORADOL [Suspect]
     Active Substance: KETOROLAC TROMETHAMINE
     Dosage: 30 MG, SINGLE
     Route: 042
     Dates: start: 20130522, end: 20130522
  2. PERFALGAN [Suspect]
     Active Substance: ACETAMINOPHEN
     Indication: POSTOPERATIVE ANALGESIA
     Dosage: 1 G, 3X/DAY
     Route: 042
     Dates: start: 20130521, end: 20130521
  3. OMEPRAZOLE. [Suspect]
     Active Substance: OMEPRAZOLE
     Indication: PROPHYLAXIS
     Dosage: 40 MG, SINGLE
     Route: 042
     Dates: start: 20130521, end: 20130521
  4. TORADOL [Suspect]
     Active Substance: KETOROLAC TROMETHAMINE
     Indication: POSTOPERATIVE ANALGESIA
     Dosage: 30 MG, 3X/DAY
     Route: 042
     Dates: start: 20130521, end: 20130521
  5. CEFAMEZIN [Suspect]
     Active Substance: CEFAZOLIN
     Indication: ANTIBIOTIC PROPHYLAXIS
     Dosage: 2 G, DAILY
     Route: 042
     Dates: start: 20130521, end: 20130522
  6. ESMERON [Suspect]
     Active Substance: ROCURONIUM BROMIDE
     Indication: ANAESTHESIA
     Dosage: 50 MG, SINGLE
     Route: 042
     Dates: start: 20130521, end: 20130521
  7. PERFALGAN [Suspect]
     Active Substance: ACETAMINOPHEN
     Dosage: 1 G, SINGLE
     Route: 042
     Dates: start: 20130522, end: 20130522
  8. MORPHINE HYDROCHLORIDE [Suspect]
     Active Substance: MORPHINE HYDROCHLORIDE
     Dosage: 10 MG, TOTAL
     Route: 042
     Dates: start: 20130521, end: 20130521
  9. PROPOFOL. [Suspect]
     Active Substance: PROPOFOL
     Indication: ANAESTHESIA
     Dosage: 4 MG/KG/MIN
     Route: 042
     Dates: start: 20130521, end: 20130521
  10. REMIFENTANIL [Suspect]
     Active Substance: REMIFENTANIL
     Indication: ANAESTHESIA
     Dosage: 0.4 UG/KG/MIN
     Route: 042
     Dates: start: 20130521, end: 20130521
  11. IVOR [Suspect]
     Active Substance: BEMIPARIN SODIUM
     Indication: THROMBOSIS PROPHYLAXIS
     Dosage: 3500 IU, 1X/DAY
     Route: 058
     Dates: start: 20130521, end: 20130524

REACTIONS (1)
  - Acute kidney injury [Recovered/Resolved]

NARRATIVE: CASE EVENT DATE: 20130524
